FAERS Safety Report 4424163-7 (Version None)
Quarter: 2004Q3

REPORT INFORMATION
  Report Type: 
  Country: None (occurrence: None)
  Receive Date: 20040715
  Receipt Date: 20040225
  Transmission Date: 20050211
  Serious: Yes (Other)
  Sender: FDA-Public Use
  Company Number: 2004201202PR

PATIENT
  Age: 73 Year

DRUGS (9)
  1. CELEBREX [Suspect]
     Indication: OSTEOARTHRITIS
     Dosage: ORAL
     Route: 048
     Dates: start: 20030101
  2. MOTRIN [Suspect]
  3. BEXTRA [Concomitant]
  4. SKELAXIN [Concomitant]
  5. ZITHROMAX [Concomitant]
  6. TARKA (VERAPAMIL HYDROCHLORIDE) [Concomitant]
  7. ACETAMINOPHEN [Concomitant]
  8. INSULIN [Concomitant]
  9. NOMIT [Concomitant]

REACTIONS (4)
  - ACCIDENT [None]
  - HEADACHE [None]
  - HEPATIC ENZYME INCREASED [None]
  - UNEVALUABLE EVENT [None]
